FAERS Safety Report 12437852 (Version 4)
Quarter: 2018Q3

REPORT INFORMATION
  Report Type: Spontaneous
  Country: US (occurrence: US)
  Receive Date: 20160606
  Receipt Date: 20180807
  Transmission Date: 20181010
  Serious: Yes (Death, Other)
  Sender: FDA-Public Use
  Company Number: US-DSJP-DSU-2015-127919

PATIENT

DRUGS (12)
  1. BENZONATATE. [Concomitant]
     Active Substance: BENZONATATE
     Dosage: 200 MG, UNK
     Dates: start: 20121015, end: 20150302
  2. MECLIZINE [Concomitant]
     Active Substance: MECLIZINE HYDROCHLORIDE
     Dosage: 25 MG, UNK
     Dates: start: 20120709, end: 20121027
  3. BENICAR HCT [Suspect]
     Active Substance: HYDROCHLOROTHIAZIDE\OLMESARTAN MEDOXOMIL
     Indication: PRODUCT USED FOR UNKNOWN INDICATION
     Dosage: UNK
     Dates: start: 20120618
  4. MONTELUCAST [Concomitant]
     Active Substance: MONTELUKAST SODIUM
     Dosage: 10 MG, UNK
     Dates: start: 20140524, end: 20150409
  5. ZALEPLON. [Concomitant]
     Active Substance: ZALEPLON
     Dosage: 10 MG, UNK
     Dates: start: 20131122, end: 20150204
  6. CEFUROXIME. [Concomitant]
     Active Substance: CEFUROXIME
     Dosage: 500 MG, UNK
     Dates: start: 20140524, end: 20141210
  7. TOLTERODINE [Concomitant]
     Active Substance: TOLTERODINE
     Dosage: 4 MG, UNK
     Dates: start: 20141122, end: 20150224
  8. TRAMADOL. [Concomitant]
     Active Substance: TRAMADOL
     Dosage: 50 MG, UNK
     Dates: start: 20130608, end: 20150204
  9. BENICAR [Suspect]
     Active Substance: OLMESARTAN MEDOXOMIL
     Dosage: 40 MG, QD
     Route: 048
     Dates: start: 2014, end: 2015
  10. BENICAR [Suspect]
     Active Substance: OLMESARTAN MEDOXOMIL
     Indication: BLOOD PRESSURE MEASUREMENT
     Dosage: 20 MG, QD
     Dates: start: 20120618, end: 2014
  11. DETROL LA [Concomitant]
     Active Substance: TOLTERODINE TARTRATE
     Dosage: 4 MG, UNK
     Dates: start: 20120608, end: 20121018
  12. ROPINIROLE. [Concomitant]
     Active Substance: ROPINIROLE

REACTIONS (7)
  - Sprue-like enteropathy [Unknown]
  - Diverticulum intestinal [Recovered/Resolved]
  - Cholecystitis chronic [Unknown]
  - Acute kidney injury [Unknown]
  - Gastrooesophageal reflux disease [Unknown]
  - Diverticulitis [Unknown]
  - Large intestine polyp [Recovered/Resolved]

NARRATIVE: CASE EVENT DATE: 20141112
